FAERS Safety Report 7088108-6 (Version None)
Quarter: 2010Q4

REPORT INFORMATION
  Report Type: 
  Country: None (occurrence: None)
  Receive Date: 20101108
  Receipt Date: 20101028
  Transmission Date: 20110411
  Serious: Yes (Hospitalization)
  Sender: FDA-Public Use
  Company Number: US-ASTRAZENECA-2010SE51369

PATIENT
  Age: 18396 Day
  Sex: Male
  Weight: 98.3 kg

DRUGS (10)
  1. SEROQUEL [Suspect]
     Indication: BIPOLAR DISORDER
     Route: 048
     Dates: start: 20090101, end: 20100720
  2. SEROQUEL [Suspect]
     Route: 048
     Dates: start: 20100914
  3. OPEN-LABEL [Suspect]
     Indication: BIPOLAR DISORDER
     Route: 048
     Dates: start: 20100726, end: 20100726
  4. OPEN-LABEL [Suspect]
     Route: 048
     Dates: start: 20100727, end: 20100727
  5. OPEN-LABEL [Suspect]
     Route: 048
     Dates: start: 20100728, end: 20100804
  6. OPEN-LABEL [Suspect]
     Route: 048
     Dates: start: 20100805, end: 20100808
  7. OPEN-LABEL [Suspect]
     Route: 048
     Dates: start: 20100809, end: 20100914
  8. TYLENOL [Concomitant]
     Indication: BACK PAIN
     Route: 048
     Dates: start: 20100720
  9. IBUPROFEN [Concomitant]
     Indication: BACK PAIN
     Route: 050
     Dates: start: 20100720
  10. OTC LAXATIVES [Concomitant]
     Indication: CONSTIPATION

REACTIONS (3)
  - CONSTIPATION [None]
  - INSOMNIA [None]
  - INTESTINAL OBSTRUCTION [None]
